FAERS Safety Report 5102287-9 (Version None)
Quarter: 2006Q3

REPORT INFORMATION
  Report Type: 
  Country: None (occurrence: None)
  Receive Date: 20060731
  Receipt Date: 20060526
  Transmission Date: 20061208
  Serious: No
  Sender: FDA-Public Use
  Company Number: 2006PV014554

PATIENT
  Age: 76 Year
  Sex: Female

DRUGS (12)
  1. BYETTA [Suspect]
     Indication: DIABETES MELLITUS NON-INSULIN-DEPENDENT
     Dosage: SEE IMAGE
     Route: 058
     Dates: start: 20060525, end: 20060526
  2. BYETTA [Suspect]
     Indication: DIABETES MELLITUS NON-INSULIN-DEPENDENT
     Dosage: SEE IMAGE
     Route: 058
     Dates: start: 20060523
  3. BYETTA [Suspect]
     Indication: DIABETES MELLITUS NON-INSULIN-DEPENDENT
     Dosage: SEE IMAGE
     Route: 058
     Dates: start: 20060527
  4. GLYBURIDE [Concomitant]
  5. METFORMIN HCL [Concomitant]
  6. AVANDIA [Concomitant]
  7. SOTOLOL [Concomitant]
  8. NIACIN [Concomitant]
  9. HYDROCHLOROTHIAZIDE [Concomitant]
  10. ASPIRIN [Concomitant]
  11. DIGOXIN [Concomitant]
  12. ZETIA [Concomitant]

REACTIONS (6)
  - ASTHENIA [None]
  - BLOOD GLUCOSE INCREASED [None]
  - DIZZINESS [None]
  - HYPOTENSION [None]
  - NAUSEA [None]
  - VOMITING [None]
